FAERS Safety Report 14147193 (Version 1)
Quarter: 2017Q4

REPORT INFORMATION
  Report Type: Report from Study
  Country: AU (occurrence: AU)
  Receive Date: 20171031
  Receipt Date: 20171031
  Transmission Date: 20180321
  Serious: Yes (Other)
  Sender: FDA-Public Use
  Company Number: AU-REGENERON PHARMACEUTICALS, INC.-2017-25474

PATIENT

DRUGS (1)
  1. EYLEA [Suspect]
     Active Substance: AFLIBERCEPT
     Indication: NEOVASCULAR AGE-RELATED MACULAR DEGENERATION
     Dosage: UNK, Q3MON, RIGHT EYE
     Route: 031

REACTIONS (5)
  - Foreign body sensation in eyes [Recovered/Resolved]
  - Intra-ocular injection [Recovered/Resolved]
  - Metamorphopsia [Recovered/Resolved]
  - Injection site discomfort [Unknown]
  - Injection site pain [Recovered/Resolved]
